FAERS Safety Report 5542520-2 (Version None)
Quarter: 2007Q4

REPORT INFORMATION
  Report Type: 
  Country: None (occurrence: None)
  Receive Date: 20071120
  Receipt Date: 20070913
  Transmission Date: 20080405
  Serious: Yes (Other)
  Sender: FDA-Public Use
  Company Number: 40818

PATIENT
  Age: 14 Year
  Sex: Male

DRUGS (3)
  1. METHOTREXATE [Suspect]
     Indication: JUVENILE ARTHRITIS
     Dosage: 15MG/M2
  2. DICLOFENAC [Concomitant]
  3. PREDNISOLONE [Concomitant]

REACTIONS (3)
  - BLOOD CREATINE INCREASED [None]
  - DEHYDRATION [None]
  - VOMITING [None]
